FAERS Safety Report 10201606 (Version 1)
Quarter: 2014Q2

REPORT INFORMATION
  Report Type: Spontaneous
  Country: US (occurrence: US)
  Receive Date: 20140528
  Receipt Date: 20140528
  Transmission Date: 20141212
  Serious: Yes (Other)
  Sender: FDA-Public Use
  Company Number: US-JNJFOC-20140512876

PATIENT
  Age: 63 Year
  Sex: Male
  Weight: 127.01 kg

DRUGS (8)
  1. INVOKANA [Suspect]
     Indication: DIABETES MELLITUS
     Route: 048
     Dates: start: 201401, end: 2014
  2. INVOKANA [Suspect]
     Indication: DIABETES MELLITUS
     Route: 048
     Dates: start: 2014
  3. BENAZEPRIL HCL [Concomitant]
     Indication: BLOOD PRESSURE
     Route: 048
  4. LOVASTATIN [Concomitant]
     Indication: BLOOD CHOLESTEROL
     Route: 048
  5. ATENOLOL CHLORTHALIDONE [Concomitant]
     Route: 048
  6. DOXAZOSIN [Concomitant]
     Route: 048
  7. GLIMEPIRIDE [Concomitant]
     Indication: DIABETES MELLITUS
     Route: 048
  8. METFORMIN [Concomitant]
     Indication: DIABETES MELLITUS
     Route: 048

REACTIONS (9)
  - Hypersensitivity [Unknown]
  - Swelling face [Not Recovered/Not Resolved]
  - Mouth swelling [Not Recovered/Not Resolved]
  - Rash [Not Recovered/Not Resolved]
  - Malaise [Not Recovered/Not Resolved]
  - Weight decreased [Not Recovered/Not Resolved]
  - Wrong technique in drug usage process [Not Recovered/Not Resolved]
  - Pruritus [Not Recovered/Not Resolved]
  - Speech disorder [Not Recovered/Not Resolved]
